FAERS Safety Report 22123121 (Version 2)
Quarter: 2023Q2

REPORT INFORMATION
  Report Type: Report from Study
  Country: MX (occurrence: MX)
  Receive Date: 20230322
  Receipt Date: 20230404
  Transmission Date: 20230722
  Serious: Yes (Hospitalization, Other)
  Sender: FDA-Public Use
  Company Number: MX-002147023-NVSC2023MX063181

PATIENT
  Age: 71 Year
  Sex: Female
  Weight: 62 kg

DRUGS (1)
  1. FEMARA [Suspect]
     Active Substance: LETROZOLE
     Indication: Ovarian cancer
     Dosage: 1 DOSAGE FORM (2.5 MG), QD
     Route: 048
     Dates: start: 20230121, end: 20230321

REACTIONS (5)
  - Ovarian mass [Recovered/Resolved with Sequelae]
  - Ovarian cancer recurrent [Unknown]
  - Adnexa uteri pain [Recovered/Resolved]
  - Sleep disorder [Recovered/Resolved]
  - Off label use [Unknown]

NARRATIVE: CASE EVENT DATE: 20230121
